FAERS Safety Report 9885553 (Version 1)
Quarter: 2014Q1

REPORT INFORMATION
  Report Type: Spontaneous
  Country: US (occurrence: US)
  Receive Date: 20140210
  Receipt Date: 20140210
  Transmission Date: 20141002
  Serious: No
  Sender: FDA-Public Use
  Company Number: US-PFIZER INC-2014035743

PATIENT
  Age: 74 Year
  Sex: Female
  Weight: 99.1 kg

DRUGS (5)
  1. SUTENT [Suspect]
     Indication: RENAL CANCER
     Dosage: 37.5 MG, DAILY
     Route: 048
     Dates: start: 20131231, end: 20140205
  2. TYLENOL [Concomitant]
     Dosage: UNK
  3. VITAMIN E [Concomitant]
     Dosage: UNK
  4. OFLOXACIN [Concomitant]
     Dosage: EYE DROPS
     Route: 047
  5. PRED FORTE [Concomitant]
     Dosage: UNK

REACTIONS (2)
  - Eye irritation [Unknown]
  - Cataract [Unknown]
